FAERS Safety Report 19892474 (Version 1)
Quarter: 2021Q3

REPORT INFORMATION
  Report Type: Spontaneous
  Country: BE (occurrence: BE)
  Receive Date: 20210929
  Receipt Date: 20210929
  Transmission Date: 20211014
  Serious: Yes (Disabling)
  Sender: FDA-Public Use
  Company Number: BE-EMD SERONO-E2B_90085289

PATIENT
  Age: 63 Year
  Sex: Female
  Weight: 80 kg

DRUGS (6)
  1. NOLVADEX?D [Suspect]
     Active Substance: TAMOXIFEN CITRATE
     Indication: COVID-19 IMMUNISATION
     Route: 030
     Dates: start: 20210427, end: 20210427
  2. METFORMIN [Suspect]
     Active Substance: METFORMIN HYDROCHLORIDE
     Indication: COVID-19 IMMUNISATION
     Route: 030
     Dates: start: 20210427, end: 20210427
  3. L?THYROXINE [LEVOTHYROXINE] [Suspect]
     Active Substance: LEVOTHYROXINE
     Indication: COVID-19 IMMUNISATION
     Route: 030
     Dates: start: 20210427, end: 20210427
  4. CRESTOR [Suspect]
     Active Substance: ROSUVASTATIN CALCIUM
     Indication: COVID-19 IMMUNISATION
     Route: 030
     Dates: start: 20210427, end: 20210427
  5. MONTELUKAST [Suspect]
     Active Substance: MONTELUKAST SODIUM
     Indication: COVID-19 IMMUNISATION
     Route: 030
     Dates: start: 20210427, end: 20210427
  6. SYMBICORT [Suspect]
     Active Substance: BUDESONIDE\FORMOTEROL FUMARATE DIHYDRATE
     Indication: COVID-19 IMMUNISATION
     Dosage: SYMBICORT 160MICROGRAM/4.5MICROGRAM
     Route: 030
     Dates: start: 20210427, end: 20210427

REACTIONS (8)
  - Breath sounds abnormal [Recovered/Resolved]
  - Chills [Recovered/Resolved]
  - Oropharyngeal pain [Recovered/Resolved]
  - Pollakiuria [Recovered/Resolved]
  - Muscle spasms [Recovered/Resolved]
  - Pyrexia [Recovered/Resolved]
  - Head discomfort [Recovered/Resolved]
  - Sense of oppression [Recovered/Resolved]

NARRATIVE: CASE EVENT DATE: 20210427
